FAERS Safety Report 16172042 (Version 1)
Quarter: 2019Q2

REPORT INFORMATION
  Report Type: Spontaneous
  Country: US (occurrence: US)
  Receive Date: 20190409
  Receipt Date: 20190409
  Transmission Date: 20190711
  Serious: No
  Sender: FDA-Public Use
  Company Number: US-GLAXOSMITHKLINE-US2019059727

PATIENT
  Age: 71 Year

DRUGS (1)
  1. VOLTAREN [Suspect]
     Active Substance: DICLOFENAC SODIUM
     Indication: PAIN
     Dates: start: 20190401

REACTIONS (2)
  - Product administered at inappropriate site [Unknown]
  - Expired product administered [Unknown]

NARRATIVE: CASE EVENT DATE: 20190401
